FAERS Safety Report 8666178 (Version 4)
Quarter: 2012Q4

REPORT INFORMATION
  Report Type: Spontaneous
  Country: US (occurrence: None)
  Receive Date: 20120629
  Receipt Date: 20120823
  Transmission Date: 20130627
  Serious: Yes (Disabling)
  Sender: FDA-Public Use
  Company Number: 2012S1000701

PATIENT
  Age: 68 Year
  Sex: Female
  Weight: 63.2 kg

DRUGS (20)
  1. LIVALO [Suspect]
     Indication: BLOOD DISORDER
     Dosage: ;PO
     Route: 048
     Dates: start: 20120106
  2. PNEUMOCOCCAL  VACCINE [Concomitant]
  3. ... [Concomitant]
  4. FLUTICASONE PROPIONATE [Concomitant]
  5. ALBUTEROL SULFATE [Concomitant]
  6. PREMARIN [Concomitant]
  7. VITAMIN D [Concomitant]
  8. VITAMINS WITH MINERALS [Concomitant]
  9. SYNTHROID [Concomitant]
  10. NITROGLYCERIN [Concomitant]
  11. LISINOPRIL [Concomitant]
  12. CLONIDINE HYDROCHLORIDE [Concomitant]
  13. ASPIRIN [Concomitant]
  14. FISH OIL [Concomitant]
  15. FOSAMAX [Concomitant]
  16. ATENOLOL [Concomitant]
  17. ALLEGRA D-12 HOUR [Concomitant]
  18. ZOLPIDEM TARTRATE [Concomitant]
  19. FEXOFENADINE HCL [Concomitant]
  20. ZOCOR [Suspect]
     Route: 048
     Dates: start: 20111128

REACTIONS (15)
  - Asthma [None]
  - Chest pain [None]
  - Hypopnoea [None]
  - Back pain [None]
  - Oral disorder [None]
  - Dyspnoea [None]
  - Blood pressure increased [None]
  - Catheterisation cardiac [None]
  - Cardiac stress test abnormal [None]
  - Chest X-ray abnormal [None]
  - Anxiety [None]
  - Constipation [None]
  - Depression [None]
  - Hypotension [None]
  - Pleural effusion [None]
